FAERS Safety Report 11454117 (Version 1)
Quarter: 2015Q3

REPORT INFORMATION
  Report Type: Spontaneous
  Country: US (occurrence: US)
  Receive Date: 20150831
  Receipt Date: 20150831
  Transmission Date: 20151125
  Serious: No
  Sender: FDA-Public Use
  Company Number: US-ELI_LILLY_AND_COMPANY-US201002001217

PATIENT
  Age: 49 Year
  Sex: Female

DRUGS (6)
  1. CYMBALTA [Suspect]
     Active Substance: DULOXETINE HYDROCHLORIDE
     Dosage: 30 MG, DAILY (1/D)
     Route: 048
     Dates: start: 20100126
  2. CELEBREX [Concomitant]
     Active Substance: CELECOXIB
  3. ESTROGEN NOS [Concomitant]
     Active Substance: ESTROGENS
  4. CYMBALTA [Suspect]
     Active Substance: DULOXETINE HYDROCHLORIDE
     Indication: MIGRAINE
     Dosage: 30 MG, DAILY (1/D)
     Route: 048
     Dates: start: 200911, end: 200911
  5. ZYRTEC [Concomitant]
     Active Substance: CETIRIZINE HYDROCHLORIDE
  6. MUCINEX [Concomitant]
     Active Substance: GUAIFENESIN

REACTIONS (6)
  - Insomnia [Not Recovered/Not Resolved]
  - Off label use [Unknown]
  - Nausea [Not Recovered/Not Resolved]
  - Influenza like illness [Unknown]
  - Bronchitis [Unknown]
  - Vomiting [Unknown]

NARRATIVE: CASE EVENT DATE: 2009
